FAERS Safety Report 9401096 (Version 2)
Quarter: 2013Q3

REPORT INFORMATION
  Report Type: Report from Study
  Country: US (occurrence: US)
  Receive Date: 20130715
  Receipt Date: 20130828
  Transmission Date: 20140515
  Serious: Yes (Hospitalization, Other)
  Sender: FDA-Public Use
  Company Number: US-ABBOTT-13P-163-1116348-00

PATIENT
  Age: 20 Year
  Sex: Female

DRUGS (10)
  1. HUMIRA [Suspect]
     Indication: CROHN^S DISEASE
     Dosage: LOADING DOSE
     Dates: start: 20130507, end: 20130507
  2. HUMIRA [Suspect]
     Dosage: LOADING DOSE
     Dates: start: 20130521, end: 20130521
  3. HUMIRA [Suspect]
  4. HUMIRA [Suspect]
     Dates: start: 20130728
  5. PREDNISONE [Suspect]
     Indication: PRODUCT USED FOR UNKNOWN INDICATION
     Route: 048
     Dates: start: 201306
  6. PREDNISONE [Suspect]
     Route: 048
     Dates: start: 20130708
  7. PREDNISONE [Suspect]
     Route: 048
  8. PREDNISONE [Suspect]
     Route: 048
  9. MVI [Concomitant]
     Indication: PRODUCT USED FOR UNKNOWN INDICATION
     Dosage: DAILY
  10. VITAMIN D [Concomitant]
     Indication: PRODUCT USED FOR UNKNOWN INDICATION
     Dosage: DAILY

REACTIONS (19)
  - Small intestinal obstruction [Recovered/Resolved]
  - Constipation [Recovered/Resolved]
  - Abdominal pain [Recovered/Resolved]
  - Nausea [Recovered/Resolved]
  - Drug ineffective [Unknown]
  - Enteritis [Not Recovered/Not Resolved]
  - Thirst [Unknown]
  - Arthralgia [Not Recovered/Not Resolved]
  - Back pain [Not Recovered/Not Resolved]
  - Abscess [Not Recovered/Not Resolved]
  - Crohn^s disease [Unknown]
  - Abdominal discomfort [Unknown]
  - Fatigue [Unknown]
  - Increased tendency to bruise [Unknown]
  - Poor quality sleep [Unknown]
  - Infection [Unknown]
  - Nasopharyngitis [Unknown]
  - Laceration [Recovering/Resolving]
  - Skin haemorrhage [Recovering/Resolving]
